FAERS Safety Report 8115807-7 (Version None)
Quarter: 2012Q1

REPORT INFORMATION
  Report Type: 
  Country: None (occurrence: None)
  Receive Date: 20120123
  Receipt Date: 20120117
  Transmission Date: 20120608
  Serious: No
  Sender: FDA-Public Use
  Company Number: M2012-005A

PATIENT
  Age: 14 Year
  Sex: Male

DRUGS (1)
  1. PT A (AC) MIX M2012-005A-1 STD GLY OMEGA [Suspect]
     Dosage: INJECTION

REACTIONS (1)
  - ADVERSE DRUG REACTION [None]
